FAERS Safety Report 9364897 (Version 1)
Quarter: 2013Q2

REPORT INFORMATION
  Report Type: Spontaneous
  Country: BE (occurrence: BE)
  Receive Date: 20130624
  Receipt Date: 20130624
  Transmission Date: 20140414
  Serious: Yes (Other)
  Sender: FDA-Public Use
  Company Number: BE-GLAXOSMITHKLINE-B0901666A

PATIENT
  Age: 42 Year
  Sex: Female
  Weight: 62 kg

DRUGS (1)
  1. LAMBIPOL [Suspect]
     Indication: DEPRESSION
     Dosage: 25MG SEE DOSAGE TEXT
     Route: 048
     Dates: start: 20130417, end: 20130502

REACTIONS (6)
  - Haematochezia [Recovered/Resolved]
  - Renal pain [Recovered/Resolved]
  - Contusion [Recovered/Resolved]
  - Swelling [Recovered/Resolved]
  - Livedo reticularis [Recovered/Resolved]
  - Skin discolouration [Recovered/Resolved]
